FAERS Safety Report 9845831 (Version 2)
Quarter: 2014Q1

REPORT INFORMATION
  Report Type: Spontaneous
  Country: US (occurrence: US)
  Receive Date: 20140127
  Receipt Date: 20140218
  Transmission Date: 20141002
  Serious: No
  Sender: FDA-Public Use
  Company Number: US-PFIZER INC-2014022618

PATIENT
  Age: 42 Year
  Sex: Male
  Weight: 99.32 kg

DRUGS (8)
  1. LYRICA [Suspect]
     Indication: FIBROMYALGIA
     Dosage: 100 MG, 3X/DAY
     Dates: start: 2006
  2. AMLODIPINE BESYLATE [Concomitant]
     Dosage: 5 MG, DAILY
  3. CLONAZEPAM [Concomitant]
     Dosage: 0.5 MG, 3X/DAY
  4. CYCLOBENZAPRINE [Concomitant]
     Dosage: 5 MG, 3X/DAY
  5. DONEPEZIL HYDROCHLORIDE [Concomitant]
     Dosage: 5 MG, DAILY
  6. FOLIC ACID [Concomitant]
     Dosage: 1 MG, DAILY
  7. GEMFIBROZIL [Concomitant]
     Dosage: 600 MG, 2X/DAY
  8. LEVEMIR [Concomitant]
     Dosage: 30 IU, UNK

REACTIONS (1)
  - Gout [Not Recovered/Not Resolved]
